FAERS Safety Report 5273758-X (Version None)
Quarter: 2007Q1

REPORT INFORMATION
  Report Type: 
  Country: None (occurrence: None)
  Receive Date: 20070321
  Receipt Date: 20070321
  Transmission Date: 20070707
  Serious: No
  Sender: FDA-Public Use
  Company Number: None

PATIENT
  Age: 61 Year
  Sex: Female
  Weight: 76.6579 kg

DRUGS (5)
  1. BONIVA [Suspect]
     Indication: OSTEOPENIA
     Dosage: 150 MG PO MONTHLY
     Route: 048
     Dates: start: 20070304
  2. CRESTOR [Concomitant]
  3. LEVOTHYROXINE SODIUM [Concomitant]
  4. REGLAN [Concomitant]
  5. CYMBALTA [Concomitant]

REACTIONS (6)
  - ABDOMINAL PAIN [None]
  - BONE PAIN [None]
  - DIARRHOEA [None]
  - HAIR DISORDER [None]
  - PAIN [None]
  - TOOTHACHE [None]
